FAERS Safety Report 10143954 (Version 1)
Quarter: 2014Q2

REPORT INFORMATION
  Report Type: Spontaneous
  Country: GB (occurrence: GB)
  Receive Date: 20140430
  Receipt Date: 20140430
  Transmission Date: 20141212
  Serious: Yes (Hospitalization)
  Sender: FDA-Public Use
  Company Number: GB-TEVA-478369ISR

PATIENT
  Age: 58 Year
  Sex: Male

DRUGS (13)
  1. RAMIPRIL [Suspect]
     Indication: HYPERTENSION
     Route: 048
     Dates: end: 20140414
  2. FUROSEMIDE [Suspect]
     Indication: OEDEMA PERIPHERAL
     Route: 048
     Dates: start: 20140410, end: 20140414
  3. AMLODIPINE [Concomitant]
  4. ASPIRIN [Concomitant]
  5. ATORVASTATIN [Concomitant]
  6. CODEINE [Concomitant]
  7. FERROUS SULPHATE [Concomitant]
  8. HUMULIN [Concomitant]
  9. LEVOTHYROXINE [Concomitant]
  10. METFORMIN [Concomitant]
  11. OMEPRAZOLE [Concomitant]
  12. PROPRANOLOL [Concomitant]
  13. VITAMIN B COMPLEX STRONG [Concomitant]

REACTIONS (7)
  - Swollen tongue [Recovering/Resolving]
  - Lip swelling [Recovering/Resolving]
  - Eyelid oedema [Recovering/Resolving]
  - Cough [Recovering/Resolving]
  - Haemoptysis [Recovering/Resolving]
  - Dyspnoea [Recovered/Resolved]
  - Swelling face [Recovering/Resolving]
